FAERS Safety Report 5546705-0 (Version None)
Quarter: 2007Q4

REPORT INFORMATION
  Report Type: 
  Country: None (occurrence: None)
  Receive Date: 20071211
  Receipt Date: 20071204
  Transmission Date: 20080405
  Serious: Yes (Hospitalization)
  Sender: FDA-Public Use
  Company Number: AR-ROCHE-534901

PATIENT
  Age: 15 Year
  Sex: Female
  Weight: 80 kg

DRUGS (2)
  1. ROACCUTAN [Suspect]
     Indication: ACNE
     Dosage: DOSE: THREE DAILY
     Route: 048
     Dates: start: 20071124, end: 20071129
  2. ROACCUTANE [Suspect]
     Indication: ACNE
     Route: 048
     Dates: start: 20071104, end: 20071124

REACTIONS (1)
  - ANURIA [None]
